FAERS Safety Report 9003386 (Version 2)
Quarter: 2013Q1

REPORT INFORMATION
  Report Type: Spontaneous
  Country: FR (occurrence: FR)
  Receive Date: 20130108
  Receipt Date: 20130118
  Transmission Date: 20140127
  Serious: Yes (Disabling)
  Sender: FDA-Public Use
  Company Number: FR-ABBOTT-13P-056-1032040-00

PATIENT
  Sex: Female

DRUGS (6)
  1. OESTRODOSE [Suspect]
     Indication: PRODUCT USED FOR UNKNOWN INDICATION
     Dosage: CUTANEOUS
     Dates: start: 200610, end: 201010
  2. PROGESTERONE [Suspect]
     Indication: PRODUCT USED FOR UNKNOWN INDICATION
     Route: 048
     Dates: start: 2000, end: 2001
  3. PROGESTERONE [Suspect]
     Route: 048
     Dates: start: 200610, end: 201010
  4. DERINOX [Suspect]
     Indication: PRODUCT USED FOR UNKNOWN INDICATION
     Route: 045
  5. SURGESTONE [Suspect]
     Indication: PRODUCT USED FOR UNKNOWN INDICATION
     Route: 048
     Dates: start: 200011, end: 2001
  6. LUTERAN [Suspect]
     Indication: PRODUCT USED FOR UNKNOWN INDICATION
     Route: 048
     Dates: start: 200710, end: 200810

REACTIONS (1)
  - Pulmonary arterial hypertension [Not Recovered/Not Resolved]
